FAERS Safety Report 24448896 (Version 4)
Quarter: 2025Q1

REPORT INFORMATION
  Report Type: Spontaneous
  Country: JP (occurrence: JP)
  Receive Date: 20241017
  Receipt Date: 20250108
  Transmission Date: 20250409
  Serious: Yes (Hospitalization, Other)
  Sender: ALEXION PHARMACEUTICALS
  Company Number: JP-ASTRAZENECA-240084395_012620_P_1

PATIENT
  Age: 61 Year
  Weight: 61 kg

DRUGS (56)
  1. TRUQAP [Suspect]
     Active Substance: CAPIVASERTIB
     Dosage: 4 DAYS IN A ROW, FOLLOWED BY 3 DAYS OFF
  2. TRUQAP [Suspect]
     Active Substance: CAPIVASERTIB
     Dosage: 4 DAYS IN A ROW, FOLLOWED BY 3 DAYS OFF
     Route: 048
  3. TRUQAP [Suspect]
     Active Substance: CAPIVASERTIB
     Dosage: 4 DAYS IN A ROW, FOLLOWED BY 3 DAYS OFF
  4. TRUQAP [Suspect]
     Active Substance: CAPIVASERTIB
     Dosage: 4 DAYS IN A ROW, FOLLOWED BY 3 DAYS OFF
     Route: 048
  5. TRUQAP [Suspect]
     Active Substance: CAPIVASERTIB
     Dosage: 4 DAYS IN A ROW, FOLLOWED BY 3 DAYS OFF
  6. TRUQAP [Suspect]
     Active Substance: CAPIVASERTIB
     Dosage: 4 DAYS IN A ROW, FOLLOWED BY 3 DAYS OFF
     Route: 048
  7. TRUQAP [Suspect]
     Active Substance: CAPIVASERTIB
     Dosage: 4 DAYS IN A ROW, FOLLOWED BY 3 DAYS OFF
  8. TRUQAP [Suspect]
     Active Substance: CAPIVASERTIB
     Dosage: 4 DAYS IN A ROW, FOLLOWED BY 3 DAYS OFF
     Route: 048
  9. FASLODEX [Suspect]
     Active Substance: FULVESTRANT
     Dosage: DOSE UNKNOWN
     Route: 030
  10. FASLODEX [Suspect]
     Active Substance: FULVESTRANT
     Dosage: DOSE UNKNOWN
  11. FASLODEX [Suspect]
     Active Substance: FULVESTRANT
     Dosage: DOSE UNKNOWN
  12. FASLODEX [Suspect]
     Active Substance: FULVESTRANT
     Dosage: DOSE UNKNOWN
     Route: 030
  13. FASLODEX [Suspect]
     Active Substance: FULVESTRANT
  14. FASLODEX [Suspect]
     Active Substance: FULVESTRANT
     Route: 030
  15. FASLODEX [Suspect]
     Active Substance: FULVESTRANT
  16. FASLODEX [Suspect]
     Active Substance: FULVESTRANT
     Route: 030
  17. FASLODEX [Suspect]
     Active Substance: FULVESTRANT
     Dosage: 500 MILLIGRAM, Q4W
  18. FASLODEX [Suspect]
     Active Substance: FULVESTRANT
     Dosage: 500 MILLIGRAM, Q4W
  19. FASLODEX [Suspect]
     Active Substance: FULVESTRANT
     Dosage: 500 MILLIGRAM, Q4W
     Route: 030
  20. FASLODEX [Suspect]
     Active Substance: FULVESTRANT
     Dosage: 500 MILLIGRAM, Q4W
     Route: 030
  21. FASLODEX [Suspect]
     Active Substance: FULVESTRANT
  22. FASLODEX [Suspect]
     Active Substance: FULVESTRANT
     Route: 030
  23. FASLODEX [Suspect]
     Active Substance: FULVESTRANT
  24. FASLODEX [Suspect]
     Active Substance: FULVESTRANT
     Route: 030
  25. NOLVADEX [Suspect]
     Active Substance: TAMOXIFEN CITRATE
     Dosage: 10 MILLIGRAM, QD
  26. NOLVADEX [Suspect]
     Active Substance: TAMOXIFEN CITRATE
     Dosage: 10 MILLIGRAM, QD
     Route: 048
  27. NOLVADEX [Suspect]
     Active Substance: TAMOXIFEN CITRATE
     Dosage: 10 MILLIGRAM, QD
  28. NOLVADEX [Suspect]
     Active Substance: TAMOXIFEN CITRATE
     Dosage: 10 MILLIGRAM, QD
     Route: 048
  29. ZOMETA [Concomitant]
     Active Substance: ZOLEDRONIC ACID
     Indication: Breast cancer
     Route: 065
  30. ZOMETA [Concomitant]
     Active Substance: ZOLEDRONIC ACID
     Route: 065
  31. EXEMESTANE [Concomitant]
     Active Substance: EXEMESTANE
     Indication: Breast cancer
  32. EXEMESTANE [Concomitant]
     Active Substance: EXEMESTANE
     Indication: Metastases to lung
     Route: 048
  33. EXEMESTANE [Concomitant]
     Active Substance: EXEMESTANE
     Route: 065
  34. EXEMESTANE [Concomitant]
     Active Substance: EXEMESTANE
     Route: 065
  35. FEMARA [Concomitant]
     Active Substance: LETROZOLE
     Indication: Metastases to lung
     Route: 048
  36. FEMARA [Concomitant]
     Active Substance: LETROZOLE
  37. XELODA [Concomitant]
     Active Substance: CAPECITABINE
     Indication: Metastases to lung
     Route: 048
  38. XELODA [Concomitant]
     Active Substance: CAPECITABINE
  39. TOREMIFENE [Concomitant]
     Active Substance: TOREMIFENE
     Indication: Metastases to lung
     Dosage: DOSE UNKNOWN
     Route: 048
  40. TOREMIFENE [Concomitant]
     Active Substance: TOREMIFENE
     Dosage: DOSE UNKNOWN
  41. AFINITOR [Concomitant]
     Active Substance: EVEROLIMUS
     Indication: Metastases to lung
     Dosage: DOSE UNKNOWN
     Route: 048
  42. AFINITOR [Concomitant]
     Active Substance: EVEROLIMUS
     Dosage: DOSE UNKNOWN
  43. IBRANCE [Concomitant]
     Active Substance: PALBOCICLIB
     Indication: Metastases to lung
     Dosage: DOSE UNKNOWN
     Route: 048
  44. IBRANCE [Concomitant]
     Active Substance: PALBOCICLIB
     Dosage: DOSE UNKNOWN
  45. VERZENIO [Concomitant]
     Active Substance: ABEMACICLIB
     Indication: Metastases to lung
     Dosage: DOSE UNKNOWN
     Route: 048
  46. VERZENIO [Concomitant]
     Active Substance: ABEMACICLIB
     Dosage: DOSE UNKNOWN
  47. ERIBULIN [Concomitant]
     Active Substance: ERIBULIN
     Indication: Metastases to lung
     Dosage: DOSE UNKNOWN
     Route: 065
  48. ERIBULIN [Concomitant]
     Active Substance: ERIBULIN
     Dosage: DOSE UNKNOWN
     Route: 065
  49. NAVELBINE [Concomitant]
     Active Substance: VINORELBINE TARTRATE
     Indication: Metastases to lung
     Dosage: DOSE UNKNOWN
     Route: 065
  50. NAVELBINE [Concomitant]
     Active Substance: VINORELBINE TARTRATE
     Dosage: DOSE UNKNOWN
     Route: 065
  51. DOCETAXEL [Concomitant]
     Active Substance: DOCETAXEL
     Indication: Breast cancer
     Dosage: DOSE UNKNOWN
     Route: 065
  52. DOCETAXEL [Concomitant]
     Active Substance: DOCETAXEL
     Dosage: DOSE UNKNOWN
     Route: 065
  53. AVASTIN [Concomitant]
     Active Substance: BEVACIZUMAB
     Indication: Breast cancer
     Dosage: DOSE UNKNOWN
     Route: 065
  54. AVASTIN [Concomitant]
     Active Substance: BEVACIZUMAB
     Dosage: DOSE UNKNOWN
     Route: 065
  55. PACLITAXEL [Concomitant]
     Active Substance: PACLITAXEL
     Indication: Breast cancer
     Dosage: DOSE UNKNOWN
     Route: 065
  56. PACLITAXEL [Concomitant]
     Active Substance: PACLITAXEL
     Dosage: DOSE UNKNOWN
     Route: 065

REACTIONS (7)
  - Ovarian cancer [Unknown]
  - Metastases to central nervous system [Unknown]
  - Decreased appetite [Recovered/Resolved]
  - Diarrhoea [Recovered/Resolved]
  - Rash [Recovered/Resolved]
  - Large intestine polyp [Unknown]
  - Diabetes mellitus [Unknown]
